FAERS Safety Report 16789111 (Version 2)
Quarter: 2019Q3

REPORT INFORMATION
  Report Type: Spontaneous
  Country: DE (occurrence: DE)
  Receive Date: 20190910
  Receipt Date: 20190913
  Transmission Date: 20191005
  Serious: Yes (Other)
  Sender: FDA-Public Use
  Company Number: DE-ROCHE-2402802

PATIENT

DRUGS (3)
  1. HEMLIBRA [Suspect]
     Active Substance: EMICIZUMAB-KXWH
     Indication: FACTOR VIII DEFICIENCY
     Dosage: 150 MG ACCORDINGLY
     Route: 058
  2. HEMLIBRA [Suspect]
     Active Substance: EMICIZUMAB-KXWH
     Dosage: 105 MG ACCORDINGLY
     Route: 058
  3. HEMLIBRA [Suspect]
     Active Substance: EMICIZUMAB-KXWH
     Dosage: 105 MG ACCORDINGLY
     Route: 058

REACTIONS (4)
  - Injection site erythema [Unknown]
  - Gingival bleeding [Unknown]
  - Injection site pruritus [Unknown]
  - Post procedural haemorrhage [Unknown]
